FAERS Safety Report 21466801 (Version 1)
Quarter: 2022Q4

REPORT INFORMATION
  Report Type: Spontaneous
  Country: US (occurrence: None)
  Receive Date: 20221017
  Receipt Date: 20221017
  Transmission Date: 20230113
  Serious: Yes (Other)
  Sender: FDA-Public Use
  Company Number: None

PATIENT
  Sex: Male

DRUGS (1)
  1. TECENTRIQ [Suspect]
     Active Substance: ATEZOLIZUMAB
     Indication: Small cell lung cancer
     Dosage: OTHER FREQUENCY : EVERY THREE WEEKS;?
     Route: 042

REACTIONS (2)
  - Rash maculo-papular [None]
  - Rash erythematous [None]

NARRATIVE: CASE EVENT DATE: 20221017
